FAERS Safety Report 4806397-2 (Version None)
Quarter: 2005Q4

REPORT INFORMATION
  Report Type: 
  Country: None (occurrence: None)
  Receive Date: 20051019
  Receipt Date: 20051010
  Transmission Date: 20060501
  Serious: Yes (Hospitalization)
  Sender: FDA-Public Use
  Company Number: 234796K05USA

PATIENT
  Age: 48 Year
  Sex: Female
  Weight: 86.1834 kg

DRUGS (2)
  1. REBIF [Suspect]
     Indication: MULTIPLE SCLEROSIS
     Dosage: 44 MCG, 3 IN 1 WEEKS, SUBCUTANEOUS
     Route: 058
     Dates: start: 20050121
  2. MOTRIN [Suspect]
     Indication: MULTIPLE SCLEROSIS
     Dosage: 800 MG, 6 IN 1 WEEKS, ORAL
     Route: 048
     Dates: start: 20050801, end: 20050930

REACTIONS (9)
  - DEHYDRATION [None]
  - ERYTHEMA [None]
  - GASTRITIS [None]
  - NAUSEA [None]
  - OEDEMA PERIPHERAL [None]
  - OVARIAN CYST [None]
  - PAIN IN EXTREMITY [None]
  - THROMBOSIS [None]
  - VOMITING [None]
